FAERS Safety Report 16292463 (Version 2)
Quarter: 2020Q4

REPORT INFORMATION
  Report Type: Spontaneous
  Country: US (occurrence: US)
  Receive Date: 20190509
  Receipt Date: 20201028
  Transmission Date: 20210113
  Serious: Yes (Hospitalization, Disabling, Other)
  Sender: FDA-Public Use
  Company Number: US-ASTRAZENECA-2019SE62773

PATIENT
  Age: 22618 Day
  Sex: Female
  Weight: 76.2 kg

DRUGS (22)
  1. PRILOSEC [Suspect]
     Active Substance: OMEPRAZOLE MAGNESIUM
     Indication: GASTROOESOPHAGEAL REFLUX DISEASE
     Dosage: GENERIC
     Route: 065
     Dates: start: 200211, end: 200212
  2. FLUTICASONE. [Concomitant]
     Active Substance: FLUTICASONE
  3. PANTOPRAZOLE [Suspect]
     Active Substance: PANTOPRAZOLE
     Indication: GASTROOESOPHAGEAL REFLUX DISEASE
     Route: 065
     Dates: start: 201210
  4. TOPIRAMATE. [Concomitant]
     Active Substance: TOPIRAMATE
  5. FUROSEMIDE. [Concomitant]
     Active Substance: FUROSEMIDE
  6. RENVELA [Concomitant]
     Active Substance: SEVELAMER CARBONATE
  7. LORAZEPAM. [Concomitant]
     Active Substance: LORAZEPAM
  8. DOXEPIN [Concomitant]
     Active Substance: DOXEPIN
     Indication: FATIGUE
  9. WARFARIN [Concomitant]
     Active Substance: WARFARIN
  10. AZITHROMYCIN ANHYDROUS. [Concomitant]
     Active Substance: AZITHROMYCIN ANHYDROUS
  11. TAMSULOSIN [Concomitant]
     Active Substance: TAMSULOSIN
  12. PRILOSEC [Suspect]
     Active Substance: OMEPRAZOLE MAGNESIUM
     Indication: GASTROOESOPHAGEAL REFLUX DISEASE
     Route: 048
     Dates: start: 199001, end: 201412
  13. PRILOSEC OTC [Suspect]
     Active Substance: OMEPRAZOLE MAGNESIUM
     Indication: GASTROOESOPHAGEAL REFLUX DISEASE
     Route: 048
     Dates: start: 200306, end: 200307
  14. METOPROLOL. [Concomitant]
     Active Substance: METOPROLOL
  15. KEFLEX [Concomitant]
     Active Substance: CEPHALEXIN
     Indication: URINARY TRACT INFECTION
  16. LISINOPRIL. [Concomitant]
     Active Substance: LISINOPRIL
  17. METOPROLOL. [Concomitant]
     Active Substance: METOPROLOL
  18. PROCHLORPERAZINE. [Concomitant]
     Active Substance: PROCHLORPERAZINE
  19. GABAPENTIN. [Concomitant]
     Active Substance: GABAPENTIN
  20. OXYCODONE [Concomitant]
     Active Substance: OXYCODONE
     Indication: ARTHRITIS
  21. PRILOSEC [Suspect]
     Active Substance: OMEPRAZOLE MAGNESIUM
     Indication: GASTROOESOPHAGEAL REFLUX DISEASE
     Route: 048
     Dates: start: 1990, end: 2014
  22. KEPPRA [Concomitant]
     Active Substance: LEVETIRACETAM
     Indication: SEIZURE

REACTIONS (4)
  - Acute kidney injury [Unknown]
  - Gastrooesophageal reflux disease [Not Recovered/Not Resolved]
  - Renal failure [Not Recovered/Not Resolved]
  - Chronic kidney disease [Not Recovered/Not Resolved]

NARRATIVE: CASE EVENT DATE: 20121014
